APPROVED DRUG PRODUCT: FLUVOXAMINE MALEATE
Active Ingredient: FLUVOXAMINE MALEATE
Strength: 100MG
Dosage Form/Route: TABLET;ORAL
Application: A075888 | Product #003 | TE Code: AB
Applicant: AIPING PHARMACEUTICAL INC
Approved: Nov 29, 2000 | RLD: No | RS: Yes | Type: RX